FAERS Safety Report 24959644 (Version 1)
Quarter: 2025Q1

REPORT INFORMATION
  Report Type: Spontaneous
  Country: US (occurrence: None)
  Receive Date: 20250211
  Receipt Date: 20250211
  Transmission Date: 20250409
  Serious: Yes (Death)
  Sender: FDA-CTU
  Company Number: None

PATIENT
  Age: 66 Year
  Sex: Female

DRUGS (1)
  1. LENALIDOMIDE [Suspect]
     Active Substance: LENALIDOMIDE
     Indication: Plasma cell myeloma
     Dosage: FREQUENCY : DAILY;?
     Route: 048
     Dates: start: 20240521, end: 20250209

REACTIONS (8)
  - Pneumonia [None]
  - Effusion [None]
  - Cough [None]
  - Chest pain [None]
  - General physical health deterioration [None]
  - Squamous cell carcinoma [None]
  - Disease recurrence [None]
  - Metastasis [None]

NARRATIVE: CASE EVENT DATE: 20250209
